FAERS Safety Report 11734101 (Version 2)
Quarter: 2016Q2

REPORT INFORMATION
  Report Type: Report from Study
  Country: CA (occurrence: CA)
  Receive Date: 20151113
  Receipt Date: 20160404
  Transmission Date: 20160815
  Serious: Yes (Hospitalization, Other)
  Sender: FDA-Public Use
  Company Number: CA-ABBVIE-15K-028-1496800-00

PATIENT
  Age: 48 Year
  Sex: Female
  Weight: 60.7 kg

DRUGS (4)
  1. PANTOLOC [Concomitant]
     Active Substance: PANTOPRAZOLE SODIUM
     Indication: GASTROOESOPHAGEAL REFLUX DISEASE
     Route: 048
  2. HUMIRA [Suspect]
     Active Substance: ADALIMUMAB
     Indication: CROHN^S DISEASE
     Route: 058
     Dates: start: 20150226, end: 201507
  3. DOMPERIDONE [Concomitant]
     Active Substance: DOMPERIDONE
     Indication: PRODUCT USED FOR UNKNOWN INDICATION
     Dosage: QD
     Route: 048
     Dates: start: 20150604, end: 20150614
  4. METOCLOPRAMIDE HYDROCHLORIDE. [Concomitant]
     Active Substance: METOCLOPRAMIDE HYDROCHLORIDE
     Indication: PRODUCT USED FOR UNKNOWN INDICATION
     Dates: start: 20150624, end: 20150706

REACTIONS (4)
  - Small intestinal perforation [Recovering/Resolving]
  - Infection [Unknown]
  - Abscess [Unknown]
  - Diarrhoea [Unknown]

NARRATIVE: CASE EVENT DATE: 2015
